FAERS Safety Report 24095553 (Version 1)
Quarter: 2024Q3

REPORT INFORMATION
  Report Type: Spontaneous
  Country: US (occurrence: US)
  Receive Date: 20240716
  Receipt Date: 20240716
  Transmission Date: 20241017
  Serious: No
  Sender: AJANTA PHARMA
  Company Number: US-AJANTA-2024AJA00086

PATIENT

DRUGS (4)
  1. DULOXETINE [Suspect]
     Active Substance: DULOXETINE
     Indication: Anxiety
     Route: 048
     Dates: start: 20240411, end: 20240425
  2. DULOXETINE [Suspect]
     Active Substance: DULOXETINE
     Indication: Neuralgia
  3. DULOXETINE [Suspect]
     Active Substance: DULOXETINE
     Indication: Neuralgia
  4. DULOXETINE [Suspect]
     Active Substance: DULOXETINE
     Indication: Back pain

REACTIONS (10)
  - Brain fog [Recovering/Resolving]
  - Increased appetite [Unknown]
  - Withdrawal syndrome [Unknown]
  - Visual impairment [Recovering/Resolving]
  - Tremor [Recovered/Resolved]
  - Headache [Recovering/Resolving]
  - Dyspepsia [Recovering/Resolving]
  - Fatigue [Unknown]
  - Irritability [Unknown]
  - Drug ineffective [Unknown]

NARRATIVE: CASE EVENT DATE: 20240401
